FAERS Safety Report 5493301-X (Version None)
Quarter: 2007Q4

REPORT INFORMATION
  Report Type: 
  Country: None (occurrence: None)
  Receive Date: 20071023
  Receipt Date: 20061003
  Transmission Date: 20080405
  Serious: No
  Sender: FDA-Public Use
  Company Number: US-BRISTOL-MYERS SQUIBB COMPANY-13530597

PATIENT
  Age: 36 Year
  Sex: Female

DRUGS (1)
  1. KENALOG-40 [Suspect]
     Indication: URTICARIA
     Dosage: RECEIVED KENALOG-40, 1.3 CC INTRAMUSCULARLY INTO HER RIGHT GLUTEUS MUSCLE ONE TIME ON 8/10/2006
     Route: 030
     Dates: start: 20060810

REACTIONS (1)
  - MUSCLE ATROPHY [None]
